FAERS Safety Report 7225590-5 (Version None)
Quarter: 2011Q1

REPORT INFORMATION
  Report Type: 
  Country: None (occurrence: None)
  Receive Date: 20110113
  Receipt Date: 20110110
  Transmission Date: 20110831
  Serious: Yes (Hospitalization)
  Sender: FDA-Public Use
  Company Number: BR-ABBOTT-10P-020-0693337-00

PATIENT
  Sex: Female

DRUGS (1)
  1. HUMIRA [Suspect]
     Indication: RHEUMATOID ARTHRITIS

REACTIONS (8)
  - DIABETES MELLITUS [None]
  - DIARRHOEA [None]
  - LIVER ABSCESS [None]
  - RENAL DISORDER [None]
  - ABDOMINAL PAIN [None]
  - ASTHENIA [None]
  - SPLEEN DISORDER [None]
  - IMMUNOSUPPRESSION [None]
